FAERS Safety Report 4909356-4 (Version None)
Quarter: 2006Q1

REPORT INFORMATION
  Report Type: 
  Country: None (occurrence: None)
  Receive Date: 20060213
  Receipt Date: 20060125
  Transmission Date: 20060701
  Serious: Yes (Other)
  Sender: FDA-Public Use
  Company Number: JP-JPN-A200600312

PATIENT
  Age: 41 Year
  Sex: Female
  Weight: 45 kg

DRUGS (12)
  1. PAXIL [Suspect]
     Indication: DEPRESSION
     Dosage: 20MG TWICE PER DAY
     Route: 048
     Dates: start: 20051001, end: 20060123
  2. PAXIL [Suspect]
     Dosage: 20MG PER DAY
     Route: 048
     Dates: start: 20060124
  3. LASIX [Suspect]
     Dosage: 40MG PER DAY
     Route: 048
  4. MEILAX [Suspect]
     Indication: INSOMNIA
     Dosage: 1MG PER DAY
     Route: 048
     Dates: end: 20051222
  5. MYSLEE [Suspect]
     Indication: INSOMNIA
     Dosage: 5MG PER DAY
     Route: 048
  6. DEPAS [Suspect]
     Indication: INSOMNIA
     Dosage: .5MG PER DAY
     Route: 048
  7. GASCON [Suspect]
     Indication: ENTEROCOLITIS
     Dosage: 80MG THREE TIMES PER DAY
     Route: 048
     Dates: end: 20051215
  8. MAGLAX [Suspect]
     Indication: CONSTIPATION
     Dosage: 660MG THREE TIMES PER DAY
     Route: 048
     Dates: start: 20051001
  9. BIOFERMIN [Suspect]
     Indication: CONSTIPATION
     Dosage: 1TAB THREE TIMES PER DAY
     Route: 048
     Dates: start: 20051001, end: 20051015
  10. LAXOBERON [Suspect]
     Indication: CONSTIPATION
     Dosage: 1ML PER DAY
     Route: 048
     Dates: start: 20051001
  11. SOLANAX [Suspect]
     Indication: INSOMNIA
     Dosage: .4MG PER DAY
     Route: 048
     Dates: end: 20060114
  12. DORAL [Suspect]
     Indication: INSOMNIA
     Dosage: 15MG PER DAY
     Route: 048

REACTIONS (7)
  - ALANINE AMINOTRANSFERASE INCREASED [None]
  - ASPARTATE AMINOTRANSFERASE INCREASED [None]
  - BLOOD LACTATE DEHYDROGENASE INCREASED [None]
  - FATIGUE [None]
  - GAMMA-GLUTAMYLTRANSFERASE INCREASED [None]
  - HEPATIC FUNCTION ABNORMAL [None]
  - PYREXIA [None]
